FAERS Safety Report 4300388-6 (Version None)
Quarter: 2004Q1

REPORT INFORMATION
  Report Type: 
  Country: None (occurrence: None)
  Receive Date: 20040220
  Receipt Date: 20040211
  Transmission Date: 20041129
  Serious: Yes (Hospitalization)
  Sender: FDA-Public Use
  Company Number: FR-GLAXOSMITHKLINE-B0322879A

PATIENT
  Age: 62 Year
  Sex: Male
  Weight: 65 kg

DRUGS (9)
  1. AUGMENTIN [Suspect]
     Dosage: 1G THREE TIMES PER DAY
     Route: 048
     Dates: start: 20031125, end: 20040119
  2. ISOFLURANE [Concomitant]
     Route: 055
  3. ZYLORIC [Concomitant]
     Route: 048
  4. LOXEN [Concomitant]
     Indication: HYPERTENSION
     Route: 048
  5. PROPOFOL [Concomitant]
     Route: 065
  6. SUFENTANIL CITRATE [Concomitant]
     Route: 065
  7. PARACETAMOL [Concomitant]
     Route: 065
     Dates: start: 20040107, end: 20040115
  8. TAZOCILLINE [Concomitant]
     Route: 042
     Dates: start: 20040107
  9. OFLOCET [Concomitant]
     Route: 048
     Dates: start: 20031230

REACTIONS (7)
  - ABDOMINAL PAIN UPPER [None]
  - ALANINE AMINOTRANSFERASE INCREASED [None]
  - BLOOD ALKALINE PHOSPHATASE INCREASED [None]
  - BLOOD BILIRUBIN INCREASED [None]
  - CELLULITIS [None]
  - EOSINOPHILIA [None]
  - HEPATITIS CHOLESTATIC [None]
